FAERS Safety Report 15481828 (Version 1)
Quarter: 2018Q4

REPORT INFORMATION
  Report Type: Spontaneous
  Country: US (occurrence: US)
  Receive Date: 20181003
  Receipt Date: 20181003
  Transmission Date: 20190205
  Serious: Yes (Hospitalization)
  Sender: FDA-Public Use
  Company Number: None

PATIENT
  Age: 73 Year
  Sex: Female
  Weight: 61.23 kg

DRUGS (5)
  1. VALSARTAN TABS 160MG (GENERIC FOR DIOVAN TABS) [Suspect]
     Active Substance: VALSARTAN
     Indication: BLOOD PRESSURE INCREASED
     Dosage: ?          QUANTITY:1 DF DOSAGE FORM;?
     Route: 048
     Dates: start: 20140816, end: 20180807
  2. COLACE [Concomitant]
     Active Substance: DOCUSATE SODIUM
  3. SYSTANE ULTRA EYE DROPS [Concomitant]
  4. B12 TABLET [Concomitant]
  5. OLMESARTAN MEDOXOMIL. [Concomitant]
     Active Substance: OLMESARTAN MEDOXOMIL

REACTIONS (5)
  - Constipation [None]
  - Recalled product [None]
  - Gastric cancer [None]
  - Post procedural complication [None]
  - Product contamination [None]

NARRATIVE: CASE EVENT DATE: 20171116
